FAERS Safety Report 20496911 (Version 1)
Quarter: 2022Q1

REPORT INFORMATION
  Report Type: Spontaneous
  Country: IT (occurrence: IT)
  Receive Date: 20220221
  Receipt Date: 20220221
  Transmission Date: 20220423
  Serious: Yes (Hospitalization)
  Sender: FDA-Public Use
  Company Number: IT-LUPIN PHARMACEUTICALS INC.-2022-02390

PATIENT
  Sex: Female

DRUGS (4)
  1. LEVETIRACETAM [Suspect]
     Active Substance: LEVETIRACETAM
     Indication: Encephalopathy
     Dosage: 500 MG, BID
     Route: 048
     Dates: start: 20220103
  2. RAMIPRIL [Suspect]
     Active Substance: RAMIPRIL
     Indication: Encephalopathy
     Dosage: 5 MILLIGRAM, QD
     Route: 048
     Dates: start: 20220103
  3. ELIQUIS [Concomitant]
     Active Substance: APIXABAN
     Indication: Product used for unknown indication
     Dosage: UNK
     Route: 065
     Dates: start: 20220103
  4. ANISOTROPINE METHYLBROMIDE\DIAZEPAM [Concomitant]
     Active Substance: ANISOTROPINE METHYLBROMIDE\DIAZEPAM
     Indication: Abdominal distension
     Dosage: UNK
     Route: 065

REACTIONS (2)
  - Blister infected [Not Recovered/Not Resolved]
  - Peripheral swelling [Not Recovered/Not Resolved]
